FAERS Safety Report 22162487 (Version 1)
Quarter: 2023Q1

REPORT INFORMATION
  Report Type: Spontaneous
  Country: ES (occurrence: ES)
  Receive Date: 20230331
  Receipt Date: 20230331
  Transmission Date: 20230417
  Serious: Yes (Death)
  Sender: FDA-Public Use
  Company Number: ES-SHIONOGI, INC-2023000739

PATIENT
  Age: 33 Year

DRUGS (12)
  1. FETROJA [Suspect]
     Active Substance: CEFIDEROCOL SULFATE TOSYLATE
     Indication: Pneumonia
     Dosage: 2 G, 6 HOUR
     Route: 042
  2. FETROJA [Suspect]
     Active Substance: CEFIDEROCOL SULFATE TOSYLATE
     Indication: Sepsis
     Dosage: 8 G, CONTINUOUS INFUSION
     Route: 042
  3. FETROJA [Suspect]
     Active Substance: CEFIDEROCOL SULFATE TOSYLATE
     Indication: Drug resistance
  4. FETROJA [Suspect]
     Active Substance: CEFIDEROCOL SULFATE TOSYLATE
     Indication: Pseudomonas infection
  5. AMIKACIN [Concomitant]
     Active Substance: AMIKACIN
     Indication: Pneumonia
  6. AMIKACIN [Concomitant]
     Active Substance: AMIKACIN
     Indication: Sepsis
  7. AMIKACIN [Concomitant]
     Active Substance: AMIKACIN
     Indication: Drug resistance
  8. AMIKACIN [Concomitant]
     Active Substance: AMIKACIN
     Indication: Pseudomonas infection
  9. COLISTIN [Concomitant]
     Active Substance: COLISTIN
     Indication: Pneumonia
     Dosage: UNK
  10. COLISTIN [Concomitant]
     Active Substance: COLISTIN
     Indication: Sepsis
     Dosage: UNK
     Route: 065
  11. COLISTIN [Concomitant]
     Active Substance: COLISTIN
     Indication: Drug resistance
  12. COLISTIN [Concomitant]
     Active Substance: COLISTIN
     Indication: Pseudomonas infection

REACTIONS (3)
  - Pneumonia [Fatal]
  - Treatment failure [Unknown]
  - Drug resistance [Unknown]
